FAERS Safety Report 9607687 (Version 1)
Quarter: 2013Q4

REPORT INFORMATION
  Report Type: Spontaneous
  Country: US (occurrence: None)
  Receive Date: 20131007
  Receipt Date: 20131007
  Transmission Date: 20140711
  Serious: Yes (Other)
  Sender: FDA-Public Use
  Company Number: None

PATIENT
  Age: 59 Year
  Sex: Male
  Weight: 88.45 kg

DRUGS (2)
  1. MONTELUKAST [Suspect]
     Indication: MULTIPLE ALLERGIES
     Dosage: 1, ONCE DAILY, TAKEN BY MOUTH
     Route: 048
     Dates: start: 20130201, end: 20130916
  2. MONTELUKAST [Suspect]
     Indication: CHEST DISCOMFORT
     Dosage: 1, ONCE DAILY, TAKEN BY MOUTH
     Route: 048
     Dates: start: 20130201, end: 20130916

REACTIONS (7)
  - Anxiety [None]
  - Memory impairment [None]
  - Aggression [None]
  - Abnormal dreams [None]
  - Hallucination [None]
  - Depression [None]
  - Personality change [None]
